FAERS Safety Report 8965385 (Version 1)
Quarter: 2012Q4

REPORT INFORMATION
  Report Type: 
  Country: DK (occurrence: DK)
  Receive Date: 20121213
  Receipt Date: 20121213
  Transmission Date: 20130627
  Serious: Yes (Other)
  Sender: FDA-Public Use
  Company Number: DK-ELI_LILLY_AND_COMPANY-DK201110006150

PATIENT
  Sex: Male

DRUGS (9)
  1. CYMBALTA [Suspect]
     Indication: PAIN
     Dosage: 120 mg, UNK
     Dates: start: 20090626, end: 20100226
  2. GABAPENTIN [Concomitant]
     Indication: NEURALGIA
     Dosage: UNK
     Dates: start: 200901
  3. GABAPENTIN [Concomitant]
     Dosage: 3600 mg, qid
     Route: 048
     Dates: start: 20090220, end: 20090912
  4. HJERDYL [Concomitant]
     Dosage: 75 mg, UNK
  5. KETAMINE [Concomitant]
     Indication: PAIN
     Dosage: UNK
     Dates: start: 20090626, end: 20100302
  6. KETAMINE [Concomitant]
     Dosage: 100 mg, UNK
     Dates: start: 20090810, end: 20100226
  7. LYRICA [Concomitant]
     Indication: PAIN
     Dosage: 300 DF, unknown
     Dates: start: 20090810, end: 20100226
  8. METADON [Concomitant]
     Indication: PAIN
     Dosage: 90 mg, UNK
     Dates: start: 20090626, end: 20100302
  9. ZARATOR [Concomitant]
     Indication: BLOOD CHOLESTEROL
     Dosage: 80 mg, UNK

REACTIONS (4)
  - Disturbance in attention [Not Recovered/Not Resolved]
  - Tooth disorder [Unknown]
  - Fine motor delay [Unknown]
  - Erectile dysfunction [Unknown]
